FAERS Safety Report 13792943 (Version 1)
Quarter: 2017Q3

REPORT INFORMATION
  Report Type: Spontaneous
  Country: ES (occurrence: ES)
  Receive Date: 20170726
  Receipt Date: 20170726
  Transmission Date: 20171127
  Serious: Yes (Hospitalization)
  Sender: FDA-Public Use
  Company Number: ES-PFIZER INC-1685870

PATIENT
  Age: 66 Year
  Sex: Female

DRUGS (6)
  1. MIDAZOLAM [Suspect]
     Active Substance: MIDAZOLAM HYDROCHLORIDE
     Indication: INDUCTION OF ANAESTHESIA
     Dosage: NOT REPORTED
  2. PROPOFOL. [Suspect]
     Active Substance: PROPOFOL
     Indication: INDUCTION OF ANAESTHESIA
     Dosage: NOT REPORTED
  3. ATROPINE. [Suspect]
     Active Substance: ATROPINE
     Indication: INDUCTION OF ANAESTHESIA
     Dosage: NOT REPORTED
  4. CISATRACURIUM. [Suspect]
     Active Substance: CISATRACURIUM
     Indication: INDUCTION OF ANAESTHESIA
     Dosage: NOT REPORTED
  5. FENTANYL. [Suspect]
     Active Substance: FENTANYL
     Indication: INDUCTION OF ANAESTHESIA
     Dosage: NOT REPORTED
  6. REMIFENTANIL [Concomitant]
     Active Substance: REMIFENTANIL
     Indication: INDUCTION OF ANAESTHESIA
     Dosage: NOT REPORTED

REACTIONS (2)
  - Hypovolaemic shock [Unknown]
  - Myocardial ischaemia [Unknown]
